FAERS Safety Report 6936667-3 (Version None)
Quarter: 2010Q3

REPORT INFORMATION
  Report Type: 
  Country: None (occurrence: None)
  Receive Date: 20100823
  Receipt Date: 20100817
  Transmission Date: 20110219
  Serious: Yes (Hospitalization)
  Sender: FDA-Public Use
  Company Number: NL-ABBOTT-10P-114-0659864-00

PATIENT
  Sex: Female
  Weight: 70 kg

DRUGS (2)
  1. LEUPROLIDE ACETATE [Suspect]
     Indication: BREAST CANCER
     Route: 058
     Dates: start: 20090501
  2. TAMOXIFEN CITRATE [Concomitant]
     Indication: BREAST CANCER
     Dates: start: 20090501

REACTIONS (5)
  - HOT FLUSH [None]
  - HYPERHIDROSIS [None]
  - OPEN WOUND [None]
  - RIB FRACTURE [None]
  - ROAD TRAFFIC ACCIDENT [None]
